FAERS Safety Report 5476530-0 (Version None)
Quarter: 2007Q3

REPORT INFORMATION
  Report Type: 
  Country: None (occurrence: None)
  Receive Date: 20070926
  Receipt Date: 20061128
  Transmission Date: 20080115
  Serious: Yes (Other)
  Sender: FDA-Public Use
  Company Number: 2006147901

PATIENT
  Age: 6 Year
  Sex: Male
  Weight: 41.7309 kg

DRUGS (4)
  1. ZYRTEC [Suspect]
     Indication: HYPERSENSITIVITY
     Dosage: 10 MG (10 MG, 1 IN 1 D), ORAL
     Route: 048
     Dates: start: 20030101, end: 20060501
  2. ZYRTEC [Suspect]
     Indication: HYPERSENSITIVITY
     Dosage: 10 MG (10 MG, 1 IN 1 D), ORAL
     Route: 048
     Dates: start: 20060501
  3. ADVAIR DISKUS 100/50 [Concomitant]
  4. NASONEX [Concomitant]

REACTIONS (3)
  - HEADACHE [None]
  - MALAISE [None]
  - NAUSEA [None]
